FAERS Safety Report 9117278 (Version 2)
Quarter: 2013Q2

REPORT INFORMATION
  Report Type: Report from Study
  Country: CA (occurrence: CA)
  Receive Date: 20130225
  Receipt Date: 20130411
  Transmission Date: 20140414
  Serious: Yes (Other)
  Sender: FDA-Public Use
  Company Number: CA-JNJFOC-20130209115

PATIENT
  Age: 66 Year
  Sex: Female
  Weight: 70.5 kg

DRUGS (10)
  1. REMICADE [Suspect]
     Indication: RHEUMATOID ARTHRITIS
     Route: 042
     Dates: start: 20130214
  2. REMICADE [Suspect]
     Indication: RHEUMATOID ARTHRITIS
     Route: 042
     Dates: start: 2001
  3. METHOTREXATE [Concomitant]
     Route: 058
  4. LEUCOVORIN [Concomitant]
     Route: 065
  5. CELEBREX [Concomitant]
     Route: 065
  6. PREVACID [Concomitant]
     Route: 065
  7. SYNTHROID [Concomitant]
     Route: 065
  8. FLUCONAZOLE [Concomitant]
     Route: 065
  9. TYLENOL ARTHRITIS [Concomitant]
     Route: 065
  10. APO-CYCLOBENZAPRINE [Concomitant]
     Route: 065

REACTIONS (1)
  - Cataract [Recovered/Resolved]
